FAERS Safety Report 15214897 (Version 1)
Quarter: 2018Q3

REPORT INFORMATION
  Report Type: Spontaneous
  Country: US (occurrence: US)
  Receive Date: 20180730
  Receipt Date: 20180730
  Transmission Date: 20181010
  Serious: No
  Sender: FDA-Public Use
  Company Number: US-ELEFSEE PHARMACEUTICALS INTERNATIONAL-US-2018WTD001079

PATIENT

DRUGS (5)
  1. OXYCODONE [Concomitant]
     Active Substance: OXYCODONE
     Indication: PAIN
     Dosage: 30 MG DOSE? 150 TABLETS PER MONTH
  2. OXYCODONE [Concomitant]
     Active Substance: OXYCODONE
     Dosage: 360 TABLETS PER MONTH
     Dates: start: 2017
  3. FENTANYL. [Concomitant]
     Active Substance: FENTANYL
     Indication: PAIN
     Dosage: 150 ?G, BID
     Dates: start: 2017
  4. FENTANYL. [Concomitant]
     Active Substance: FENTANYL
     Dosage: 300 ?G, BID
  5. LAZANDA [Suspect]
     Active Substance: FENTANYL CITRATE
     Indication: PAIN
     Dosage: 400 ?G, QD (1 BOTTLE/DAY)
     Dates: start: 201602, end: 201701

REACTIONS (4)
  - Body height decreased [Not Recovered/Not Resolved]
  - Weight decreased [Not Recovered/Not Resolved]
  - Pain [Unknown]
  - Fatigue [Not Recovered/Not Resolved]

NARRATIVE: CASE EVENT DATE: 2017
